FAERS Safety Report 10007069 (Version 1)
Quarter: 2014Q1

REPORT INFORMATION
  Report Type: Spontaneous
  Country: US (occurrence: None)
  Receive Date: 20140312
  Receipt Date: 20140312
  Transmission Date: 20141002
  Serious: Yes (Hospitalization, Disabling)
  Sender: FDA-Public Use
  Company Number: None

PATIENT
  Age: 57 Year
  Sex: Male
  Weight: 86.18 kg

DRUGS (1)
  1. CIPROFLOXICIN [Suspect]
     Indication: URINARY TRACT INFECTION BACTERIAL
     Dosage: INTO A VEIN

REACTIONS (4)
  - Hypoaesthesia [None]
  - Joint range of motion decreased [None]
  - Sensory disturbance [None]
  - Local swelling [None]
